FAERS Safety Report 13265384 (Version 5)
Quarter: 2018Q1

REPORT INFORMATION
  Report Type: Report from Study
  Country: CZ (occurrence: CZ)
  Receive Date: 20170223
  Receipt Date: 20180104
  Transmission Date: 20180508
  Serious: Yes (Other)
  Sender: FDA-Public Use
  Company Number: CZ-CELGENEUS-CZE-2017022692

PATIENT
  Age: 56 Year
  Sex: Male

DRUGS (4)
  1. DEXAMETHASONE. [Concomitant]
     Active Substance: DEXAMETHASONE
     Route: 065
  2. DEXAMETHASONE. [Concomitant]
     Active Substance: DEXAMETHASONE
     Route: 065
     Dates: start: 20140507, end: 20140903
  3. IMNOVID [Suspect]
     Active Substance: POMALIDOMIDE
     Indication: PLASMA CELL MYELOMA
     Route: 048
     Dates: start: 20140507, end: 20140903
  4. DEXAMETHASONE. [Concomitant]
     Active Substance: DEXAMETHASONE
     Indication: PLASMA CELL MYELOMA
     Route: 065

REACTIONS (21)
  - Febrile neutropenia [Unknown]
  - Neutropenia [Unknown]
  - Infection [Unknown]
  - Nausea [Unknown]
  - Paresis [Unknown]
  - Pneumonia [Unknown]
  - Neuropathy peripheral [Unknown]
  - Thrombocytopenia [Unknown]
  - Thrombosis [Unknown]
  - Diarrhoea [Unknown]
  - Spinal cord compression [Unknown]
  - Constipation [Unknown]
  - Myopathy [Unknown]
  - Back pain [Unknown]
  - Tremor [Unknown]
  - Fatigue [Unknown]
  - Face oedema [Unknown]
  - Decreased appetite [Unknown]
  - Oedema peripheral [Unknown]
  - Muscle spasms [Unknown]
  - Mobility decreased [Unknown]

NARRATIVE: CASE EVENT DATE: 201407
